FAERS Safety Report 20452204 (Version 1)
Quarter: 2022Q1

REPORT INFORMATION
  Report Type: Spontaneous
  Country: US (occurrence: US)
  Receive Date: 20220209
  Receipt Date: 20220209
  Transmission Date: 20220424
  Serious: No
  Sender: FDA-Public Use
  Company Number: US-AERIE-2021-002498

PATIENT
  Age: 54 Year
  Sex: Male

DRUGS (4)
  1. RHOPRESSA [Suspect]
     Active Substance: NETARSUDIL MESYLATE
     Indication: Open angle glaucoma
     Dosage: UNK
     Route: 047
  2. DORZOLAMIDE/TIMOLOL AN [Concomitant]
     Indication: Product used for unknown indication
     Dosage: UNK
  3. BIMATOPROST [Concomitant]
     Active Substance: BIMATOPROST
     Indication: Product used for unknown indication
     Dosage: UNK
  4. TERAZOSIN [Concomitant]
     Active Substance: TERAZOSIN HYDROCHLORIDE
     Indication: Benign prostatic hyperplasia
     Dosage: UNK
     Route: 042

REACTIONS (1)
  - Cataract subcapsular [Unknown]
